FAERS Safety Report 15713713 (Version 1)
Quarter: 2018Q4

REPORT INFORMATION
  Report Type: Spontaneous
  Country: US (occurrence: US)
  Receive Date: 20181212
  Receipt Date: 20181212
  Transmission Date: 20190205
  Serious: Yes (Life-Threatening)
  Sender: FDA-Public Use
  Company Number: None

PATIENT
  Age: 65 Year
  Sex: Male
  Weight: 86.2 kg

DRUGS (5)
  1. RITUXIMAB. [Suspect]
     Active Substance: RITUXIMAB
     Indication: VASCULITIS
     Dosage: ?          OTHER FREQUENCY:ONCE;?
     Route: 041
     Dates: start: 20181212, end: 20181212
  2. ACETAMINOPHEN 650 MG PO [Concomitant]
     Dates: start: 20181212, end: 20181212
  3. METHYLPREDNISOLONE 100 MG IV [Concomitant]
     Dates: start: 20181212, end: 20181212
  4. RITUXIMAB. [Suspect]
     Active Substance: RITUXIMAB
     Indication: MICROSCOPIC POLYANGIITIS
     Dosage: ?          OTHER FREQUENCY:ONCE;?
     Route: 041
     Dates: start: 20181212, end: 20181212
  5. DIPHENHYDRAMINE 50 MG IV [Concomitant]
     Dates: start: 20181212, end: 20181212

REACTIONS (5)
  - Tachycardia [None]
  - Back pain [None]
  - Tremor [None]
  - Tachypnoea [None]
  - Chills [None]

NARRATIVE: CASE EVENT DATE: 20181212
